FAERS Safety Report 15694807 (Version 1)
Quarter: 2018Q4

REPORT INFORMATION
  Report Type: Spontaneous
  Country: US (occurrence: US)
  Receive Date: 20181126
  Receipt Date: 20181126
  Transmission Date: 20190205
  Serious: Yes (Hospitalization)
  Sender: FDA-Public Use
  Company Number: None

PATIENT
  Age: 56 Year
  Sex: Male
  Weight: 132.7 kg

DRUGS (2)
  1. CASODEX [Suspect]
     Active Substance: BICALUTAMIDE
     Dates: end: 20181024
  2. LEUPROLIDE ACETATE. [Suspect]
     Active Substance: LEUPROLIDE ACETATE
     Dosage: ?          OTHER DOSE:22.5MG;?
     Dates: end: 20181012

REACTIONS (3)
  - Myocardial infarction [None]
  - Lymphocele [None]
  - Carotid artery occlusion [None]

NARRATIVE: CASE EVENT DATE: 20181025
